FAERS Safety Report 10990329 (Version 1)
Quarter: 2015Q1

REPORT INFORMATION
  Report Type: Spontaneous
  Country: US (occurrence: None)
  Receive Date: 20150226
  Receipt Date: 20150226
  Transmission Date: 20150721
  Serious: Yes (Other)
  Sender: FDA-Public Use
  Company Number: TPA2012A02581

PATIENT
  Age: 57 Year
  Sex: Male

DRUGS (5)
  1. GLUCOPHAGE [Concomitant]
     Active Substance: METFORMIN HYDROCHLORIDE
  2. PRANDIN (DEFLAZACORT) [Concomitant]
     Active Substance: DEFLAZACORT
  3. GLUCOTROL [Concomitant]
     Active Substance: GLIPIZIDE
  4. ACTOS [Suspect]
     Active Substance: PIOGLITAZONE HYDROCHLORIDE
     Indication: TYPE 2 DIABETES MELLITUS
     Dosage: 30 MG, 1 IN 1 D
     Dates: start: 200201, end: 200204
  5. METFORMIN [Concomitant]
     Active Substance: METFORMIN HYDROCHLORIDE

REACTIONS (3)
  - Bladder cancer [None]
  - Cystitis [None]
  - Urinary retention [None]

NARRATIVE: CASE EVENT DATE: 200708
